FAERS Safety Report 14692478 (Version 2)
Quarter: 2018Q2

REPORT INFORMATION
  Report Type: Spontaneous
  Country: US (occurrence: US)
  Receive Date: 20180329
  Receipt Date: 20180402
  Transmission Date: 20180711
  Serious: No
  Sender: FDA-Public Use
  Company Number: US-PFIZER INC-2018128647

PATIENT
  Age: 77 Year
  Sex: Male
  Weight: 93 kg

DRUGS (1)
  1. METHYLPREDNISOLONE. [Suspect]
     Active Substance: METHYLPREDNISOLONE
     Indication: BACK DISORDER
     Dosage: 4 MG, AS DIRECTED FOR TAPER DOSE
     Route: 048
     Dates: start: 20180317, end: 20180322

REACTIONS (4)
  - Product use in unapproved indication [Unknown]
  - Headache [Recovering/Resolving]
  - Product label issue [Unknown]
  - Product use complaint [Unknown]

NARRATIVE: CASE EVENT DATE: 201803
